FAERS Safety Report 23885864 (Version 2)
Quarter: 2024Q2

REPORT INFORMATION
  Report Type: Report from Study
  Country: CA (occurrence: CA)
  Receive Date: 20240522
  Receipt Date: 20240618
  Transmission Date: 20240716
  Serious: Yes (Other)
  Sender: FDA-Public Use
  Company Number: CA-JNJFOC-20240202656

PATIENT
  Age: 17 Year
  Sex: Male

DRUGS (5)
  1. REMICADE [Suspect]
     Active Substance: INFLIXIMAB
     Indication: Inflammatory bowel disease
     Route: 041
     Dates: start: 20240207
  2. REMICADE [Suspect]
     Active Substance: INFLIXIMAB
     Route: 041
  3. REMICADE [Suspect]
     Active Substance: INFLIXIMAB
     Route: 041
  4. REMICADE [Suspect]
     Active Substance: INFLIXIMAB
     Route: 041
  5. REMICADE [Suspect]
     Active Substance: INFLIXIMAB
     Route: 041

REACTIONS (4)
  - Haematochezia [Not Recovered/Not Resolved]
  - Drug level decreased [Unknown]
  - Drug ineffective [Unknown]
  - Off label use [Unknown]

NARRATIVE: CASE EVENT DATE: 20240501
